FAERS Safety Report 17456245 (Version 1)
Quarter: 2020Q1

REPORT INFORMATION
  Report Type: Spontaneous
  Country: DE (occurrence: DE)
  Receive Date: 20200225
  Receipt Date: 20200225
  Transmission Date: 20200409
  Serious: No
  Sender: FDA-Public Use
  Company Number: DE-LUPIN PHARMACEUTICALS INC.-2020-00205

PATIENT
  Sex: Male

DRUGS (1)
  1. TADALAFIL-HORMOSAN 20 MG FILMTABLETTEN [Suspect]
     Active Substance: TADALAFIL
     Indication: PRODUCT USED FOR UNKNOWN INDICATION
     Dosage: UNK, QUARTER OF TABLET
     Route: 065

REACTIONS (3)
  - Product prescribing error [Unknown]
  - No adverse event [Unknown]
  - Wrong technique in product usage process [Unknown]
